FAERS Safety Report 8357717-6 (Version None)
Quarter: 2012Q2

REPORT INFORMATION
  Report Type: 
  Country: None (occurrence: None)
  Receive Date: 20120514
  Receipt Date: 20120504
  Transmission Date: 20120825
  Serious: Yes (Hospitalization)
  Sender: FDA-Public Use
  Company Number: ES-BAYER-2012-042922

PATIENT
  Age: 88 Year
  Sex: Female

DRUGS (7)
  1. FUROSEMIDE [Interacting]
  2. DIGOXIN [Concomitant]
     Indication: ATRIAL FIBRILLATION
     Route: 048
     Dates: start: 20110222, end: 20110403
  3. TELMISARTAN [Interacting]
     Indication: HYPERTENSION
     Route: 048
     Dates: start: 20060101, end: 20110403
  4. DOXAZOSIN MESYLATE [Concomitant]
     Indication: HYPERTENSION
     Route: 048
     Dates: start: 20060101, end: 20110403
  5. FUROSEMIDE [Interacting]
     Indication: CARDIAC FAILURE
     Route: 048
     Dates: start: 20110222, end: 20110403
  6. ASPIRIN [Suspect]
     Indication: ATRIAL FIBRILLATION
     Dosage: UNK
     Route: 048
     Dates: start: 20110222, end: 20110403
  7. TRAMADOL HCL [Concomitant]
     Indication: BACK PAIN
     Route: 048
     Dates: start: 20090101, end: 20110403

REACTIONS (1)
  - RENAL FAILURE ACUTE [None]
